FAERS Safety Report 23831227 (Version 1)
Quarter: 2024Q2

REPORT INFORMATION
  Report Type: Spontaneous
  Country: US (occurrence: US)
  Receive Date: 20240508
  Receipt Date: 20240508
  Transmission Date: 20240716
  Serious: No
  Sender: FDA-Public Use
  Company Number: US-BRISTOL-MYERS SQUIBB COMPANY-2024-071268

PATIENT
  Age: 31 Year
  Sex: Female

DRUGS (1)
  1. ORENCIA [Suspect]
     Active Substance: ABATACEPT
     Indication: Immunodeficiency
     Route: 058
     Dates: start: 202008

REACTIONS (2)
  - Condition aggravated [Unknown]
  - Off label use [Unknown]
